FAERS Safety Report 8233511-1 (Version None)
Quarter: 2012Q1

REPORT INFORMATION
  Report Type: 
  Country: None (occurrence: None)
  Receive Date: 20120326
  Receipt Date: 20120316
  Transmission Date: 20120608
  Serious: Yes (Other)
  Sender: FDA-Public Use
  Company Number: US-US-EMD SERONO, INC.-7119966

PATIENT
  Sex: Female
  Weight: 91 kg

DRUGS (2)
  1. VITAMIN [Concomitant]
     Indication: ROUTINE HEALTH MAINTENANCE
  2. REBIF [Suspect]
     Indication: MULTIPLE SCLEROSIS
     Route: 058
     Dates: start: 20110502

REACTIONS (2)
  - HEPATIC ENZYME INCREASED [None]
  - PNEUMONIA [None]
